FAERS Safety Report 6711980-3 (Version None)
Quarter: 2010Q2

REPORT INFORMATION
  Report Type: 
  Country: None (occurrence: None)
  Receive Date: 20100505
  Receipt Date: 20100429
  Transmission Date: 20101027
  Serious: Yes (Other)
  Sender: FDA-Public Use
  Company Number: US-PFIZER INC-2010054806

PATIENT
  Sex: Female

DRUGS (3)
  1. TOVIAZ [Suspect]
     Indication: URINARY INCONTINENCE
     Dosage: UNK
     Route: 048
     Dates: start: 20100301
  2. TOVIAZ [Suspect]
     Indication: MICTURITION URGENCY
  3. TOVIAZ [Suspect]
     Indication: POLLAKIURIA

REACTIONS (3)
  - DYSPEPSIA [None]
  - GASTRIC DISORDER [None]
  - GLAUCOMA [None]
